FAERS Safety Report 11651788 (Version 1)
Quarter: 2015Q4

REPORT INFORMATION
  Report Type: Spontaneous
  Country: US (occurrence: US)
  Receive Date: 20151022
  Receipt Date: 20151022
  Transmission Date: 20160304
  Serious: No
  Sender: FDA-Public Use
  Company Number: PHEH2015US020658

PATIENT

DRUGS (1)
  1. AFINITOR [Suspect]
     Active Substance: EVEROLIMUS
     Dosage: UNK UNK, QD
     Route: 048

REACTIONS (1)
  - Lymphoedema [Unknown]

NARRATIVE: CASE EVENT DATE: 20151013
